FAERS Safety Report 5955392-9 (Version None)
Quarter: 2008Q4

REPORT INFORMATION
  Report Type: 
  Country: None (occurrence: None)
  Receive Date: 20081117
  Receipt Date: 20081110
  Transmission Date: 20090506
  Serious: Yes (Hospitalization, Other)
  Sender: FDA-Public Use
  Company Number: US-ELI_LILLY_AND_COMPANY-US200811002182

PATIENT
  Sex: Female

DRUGS (1)
  1. HUMALOG [Suspect]
     Dates: start: 20071101

REACTIONS (5)
  - BLOOD COUNT ABNORMAL [None]
  - BLOOD POTASSIUM INCREASED [None]
  - PRODUCT QUALITY ISSUE [None]
  - RENAL DISORDER [None]
  - RENAL FAILURE [None]
